FAERS Safety Report 25332242 (Version 2)
Quarter: 2025Q2

REPORT INFORMATION
  Report Type: Spontaneous
  Country: KR (occurrence: KR)
  Receive Date: 20250519
  Receipt Date: 20250630
  Transmission Date: 20250717
  Serious: Yes (Other)
  Sender: PFIZER
  Company Number: KR-PFIZER INC-PV202500059492

PATIENT
  Age: 60 Year
  Sex: Female

DRUGS (43)
  1. IBRANCE [Suspect]
     Active Substance: PALBOCICLIB
     Indication: Malignant neoplasm of thymus
     Route: 048
  2. MACPERAN [METOCLOPRAMIDE] [Concomitant]
     Indication: Prophylaxis of nausea and vomiting
     Dosage: 10 MG (2 TABS OF 5 MG), 3X/DAY FOR 5 DAYS, 30 MIN BEFORE EACH MEAL, POSSIBLE BEFORE TAKING THE DRUG
     Route: 048
  3. NALOXONE HYDROCHLORIDE\OXYCODONE HYDROCHLORIDE [Concomitant]
     Active Substance: NALOXONE HYDROCHLORIDE\OXYCODONE HYDROCHLORIDE
     Dosage: 1 DF, 2X/DAY (EVERY 12HOURS)
     Route: 048
  4. NUCYNTA ER [Concomitant]
     Active Substance: TAPENTADOL HYDROCHLORIDE
     Dosage: 100 MG (1 TAB), 2X/DAY (EVERY 12 HOURS)
     Route: 048
  5. ALFUZOSIN [Concomitant]
     Active Substance: ALFUZOSIN
     Dosage: 10 MG (1 TAB), 1X/DAY (IMMEDIATELY AFTER DINNER, FOR 14 DAYS)
     Route: 048
  6. BEPOTEN [Concomitant]
     Dosage: 10 MG (1 TAB), 2X/DAY (IMMEDIATELY AFTER BREAKFAST AND DINNER, FOR 14 DAYS)
     Route: 048
  7. OXYCODONE HYDROCHLORIDE [Concomitant]
     Active Substance: OXYCODONE HYDROCHLORIDE
     Indication: Pain
     Dosage: 10 MG (2 TABLETS OF 5 MG), 3X/DAY (FOR 14 DAYS)
     Route: 048
  8. MAGNESIUM HYDROXIDE [Concomitant]
     Active Substance: MAGNESIUM HYDROXIDE
  9. MAGNESIUM HYDROXIDE [Concomitant]
     Active Substance: MAGNESIUM HYDROXIDE
  10. MAGNESIUM HYDROXIDE [Concomitant]
     Active Substance: MAGNESIUM HYDROXIDE
  11. MAGNESIUM HYDROXIDE [Concomitant]
     Active Substance: MAGNESIUM HYDROXIDE
  12. ZANAPAM [Concomitant]
  13. ZANAPAM [Concomitant]
  14. RIVOTRIL [Concomitant]
     Active Substance: CLONAZEPAM
  15. RIVOTRIL [Concomitant]
     Active Substance: CLONAZEPAM
  16. TRAZODONE [Concomitant]
     Active Substance: TRAZODONE HYDROCHLORIDE
  17. TRAZODONE [Concomitant]
     Active Substance: TRAZODONE HYDROCHLORIDE
  18. TRAZODONE [Concomitant]
     Active Substance: TRAZODONE HYDROCHLORIDE
  19. TRAZODONE [Concomitant]
     Active Substance: TRAZODONE HYDROCHLORIDE
  20. SYNTHROID [Concomitant]
     Active Substance: LEVOTHYROXINE SODIUM
  21. D MAC [Concomitant]
  22. LEVOTHYROXINE SODIUM [Concomitant]
     Active Substance: LEVOTHYROXINE SODIUM
  23. EZETIMIBE [Concomitant]
     Active Substance: EZETIMIBE
  24. FENTADUR [Concomitant]
  25. FENTADUR [Concomitant]
  26. MACPERAN [METOCLOPRAMIDE] [Concomitant]
  27. PREDNISOLONE [Concomitant]
     Active Substance: PREDNISOLONE
  28. TEGOPRAZAN [Concomitant]
     Active Substance: TEGOPRAZAN
  29. TANTUM [BENZYDAMINE HYDROCHLORIDE] [Concomitant]
  30. ABSTRAL [Concomitant]
     Active Substance: FENTANYL CITRATE
  31. MOVIZOLO [Concomitant]
  32. BC MORPHINE SULFATE [Concomitant]
  33. BC MORPHINE SULFATE [Concomitant]
  34. BC MORPHINE SULFATE [Concomitant]
  35. BC MORPHINE SULFATE [Concomitant]
  36. SODIUM CHLORIDE [Concomitant]
     Active Substance: SODIUM CHLORIDE
  37. DEXTROSE [Concomitant]
     Active Substance: DEXTROSE MONOHYDRATE
  38. DEXTROSE [Concomitant]
     Active Substance: DEXTROSE MONOHYDRATE
  39. PREDISOL [METHYLPREDNISOLONE SODIUM SUCCINATE] [Concomitant]
  40. ISOTONIC SODIUM CHLORIDE SOLUTION [Concomitant]
     Active Substance: SODIUM CHLORIDE
  41. HEPARIN SODIUM [Concomitant]
     Active Substance: HEPARIN SODIUM
  42. PANTOPRAZOLE SODIUM [Concomitant]
     Active Substance: PANTOPRAZOLE SODIUM
  43. MECKOOL [Concomitant]

REACTIONS (4)
  - Neurogenic bladder [Unknown]
  - Rhinitis allergic [Unknown]
  - Blister [Unknown]
  - Off label use [Unknown]
